FAERS Safety Report 5471401-8 (Version None)
Quarter: 2007Q3

REPORT INFORMATION
  Report Type: 
  Country: None (occurrence: None)
  Receive Date: 20070928
  Receipt Date: 20061026
  Transmission Date: 20080115
  Serious: No
  Sender: FDA-Public Use
  Company Number: US-BRISTOL-MYERS SQUIBB COMPANY-13527320

PATIENT
  Age: 64 Year
  Sex: Female
  Weight: 63 kg

DRUGS (2)
  1. DEFINITY [Suspect]
     Indication: STRESS ECHOCARDIOGRAM
     Dosage: RECEIVED 2 CC OF 1.5 CC PERFLUTREN IN 10 CC SALINE.
     Route: 042
     Dates: start: 20060927, end: 20060927
  2. SODIUM CHLORIDE [Concomitant]
     Indication: STRESS ECHOCARDIOGRAM
     Route: 042
     Dates: start: 20060927, end: 20060927

REACTIONS (2)
  - FLUSHING [None]
  - THROAT TIGHTNESS [None]
